FAERS Safety Report 24925262 (Version 1)
Quarter: 2025Q1

REPORT INFORMATION
  Report Type: Report from Study
  Country: US (occurrence: US)
  Receive Date: 20250204
  Receipt Date: 20250204
  Transmission Date: 20250409
  Serious: No
  Sender: EXELIXIS
  Company Number: US-EXELIXIS-CABO-24078354

PATIENT
  Sex: Female

DRUGS (2)
  1. CABOMETYX [Suspect]
     Active Substance: CABOZANTINIB S-MALATE
     Indication: Renal cancer
     Dosage: 60 MG, QD
     Route: 048
  2. CABOMETYX [Suspect]
     Active Substance: CABOZANTINIB S-MALATE
     Dosage: 40 MG, QD
     Route: 048

REACTIONS (10)
  - Blood pressure increased [Unknown]
  - Protein urine [Unknown]
  - Weight decreased [Unknown]
  - Decreased appetite [Unknown]
  - Stomatitis [Unknown]
  - Fatigue [Unknown]
  - Joint stiffness [Unknown]
  - Formication [Unknown]
  - Peripheral swelling [Unknown]
  - Arthralgia [Unknown]
